FAERS Safety Report 8337814-1 (Version None)
Quarter: 2012Q2

REPORT INFORMATION
  Report Type: 
  Country: None (occurrence: None)
  Receive Date: 20120504
  Receipt Date: 20120427
  Transmission Date: 20120825
  Serious: Yes (Hospitalization)
  Sender: FDA-Public Use
  Company Number: IT-GLAXOSMITHKLINE-B0799475A

PATIENT
  Sex: Male

DRUGS (1)
  1. PAROXETINE HYDROCHLORIDE [Suspect]
     Indication: DRUG ADMINISTRATION ERROR
     Dosage: 2TAB PER DAY
     Route: 048
     Dates: start: 20120321, end: 20120321

REACTIONS (3)
  - NAUSEA [None]
  - TREMOR [None]
  - DRUG ADMINISTRATION ERROR [None]
